FAERS Safety Report 10856075 (Version 2)
Quarter: 2015Q1

REPORT INFORMATION
  Report Type: Report from Study
  Country: US (occurrence: US)
  Receive Date: 20150223
  Receipt Date: 20150305
  Transmission Date: 20150721
  Serious: Yes (Death, Hospitalization)
  Sender: FDA-Public Use
  Company Number: US-PFIZER INC-2015033976

PATIENT
  Age: 71 Year
  Sex: Male
  Weight: 81 kg

DRUGS (15)
  1. PROAIR HFA [Concomitant]
     Active Substance: ALBUTEROL SULFATE
     Indication: ASTHMA
     Dosage: 90 MCG/ACTUATION INHALER, 2 PUFFS ORALLY EVERY 4 HOURS AS NEEDED
     Route: 055
     Dates: start: 20140216, end: 20150121
  2. ONDANSETRON [Concomitant]
     Active Substance: ONDANSETRON
     Indication: NAUSEA
     Dosage: 8 MG, EVERY 12 HOURS WHEN NEEDED
     Route: 048
     Dates: start: 20140627
  3. PALBOCICLIB [Suspect]
     Active Substance: PALBOCICLIB
     Indication: SQUAMOUS CELL CARCINOMA OF LUNG
     Dosage: 125 MG ONCE DAILY, ON DAYS 1-21, (28 DAYS CYCLE)
     Route: 048
     Dates: start: 20150105, end: 20150121
  4. FLUOXETINE [Concomitant]
     Active Substance: FLUOXETINE\FLUOXETINE HYDROCHLORIDE
     Indication: DEPRESSION
     Dosage: 40 MG, UNK
     Route: 048
     Dates: start: 20140819
  5. ALBUTEROL. [Concomitant]
     Active Substance: ALBUTEROL
     Indication: WHEEZING
  6. LORAZEPAM. [Concomitant]
     Active Substance: LORAZEPAM
     Indication: SLEEP DISORDER
     Dosage: 1 MG, 1TAB ORALLY EVERY 6 HOURS WHEN NEEDED
     Route: 048
     Dates: start: 20140527
  7. CODEINE W/GUAIFENESIN [Concomitant]
     Indication: COUGH
     Dosage: 10-100MG/5ML (1 TEASPOONFUL) ORALLY EVERY 4 HOURS WHEN NEEDED
     Route: 048
     Dates: start: 20141118
  8. TERAZOSIN [Concomitant]
     Active Substance: TERAZOSIN\TERAZOSIN HYDROCHLORIDE
     Indication: BENIGN PROSTATIC HYPERPLASIA
     Dosage: 2 MG, DAILY, 1 CAPSULE AT BEDTIME
     Route: 048
     Dates: start: 20100706
  9. ALBUTEROL. [Concomitant]
     Active Substance: ALBUTEROL
     Indication: COUGH
  10. SPIRIVA [Concomitant]
     Active Substance: TIOTROPIUM BROMIDE MONOHYDRATE
     Dosage: 18MCG INHALER, 1 CAPSULE CONTENTS INHALED, DAILY
     Route: 055
     Dates: start: 20140421
  11. PREDNISONE. [Concomitant]
     Active Substance: PREDNISONE
     Indication: COUGH
     Dosage: 20 MG, DAILY
     Dates: start: 20141208, end: 20150105
  12. ALBUTEROL. [Concomitant]
     Active Substance: ALBUTEROL
     Indication: DYSPNOEA
     Dosage: [PROVENTIL 2.5MG]/[VENTOLIN 0.5MG], 1 VIAL VIA NEBULIZER Q4 HOURS AS NEEDED
     Route: 055
     Dates: start: 20150121
  13. QVAR [Concomitant]
     Active Substance: BECLOMETHASONE DIPROPIONATE
     Indication: ASTHMA PROPHYLAXIS
     Dosage: 80MCG/ACTUATION INHALER, 2 PUFFS BY INHALATION 2X/DAY
     Route: 055
     Dates: start: 20140216
  14. LORAZEPAM. [Concomitant]
     Active Substance: LORAZEPAM
     Indication: NAUSEA
  15. ONDANSETRON [Concomitant]
     Active Substance: ONDANSETRON
     Indication: VOMITING

REACTIONS (1)
  - Dyspnoea [Fatal]

NARRATIVE: CASE EVENT DATE: 20150106
